FAERS Safety Report 25098923 (Version 2)
Quarter: 2025Q2

REPORT INFORMATION
  Report Type: Spontaneous
  Country: CA (occurrence: CA)
  Receive Date: 20250320
  Receipt Date: 20250624
  Transmission Date: 20250716
  Serious: Yes (Death, Life-Threatening, Hospitalization, Disabling, Congenital Anomaly, Other)
  Sender: Haleon PLC
  Company Number: CA-SANDOZ-SDZ2025CA016303

PATIENT
  Age: 40 Year
  Sex: Female

DRUGS (376)
  1. DICLOFENAC [Suspect]
     Active Substance: DICLOFENAC
     Indication: Product used for unknown indication
  2. HYDROCORTISONE BUTYRATE [Suspect]
     Active Substance: HYDROCORTISONE BUTYRATE
     Indication: Product used for unknown indication
  3. HYDROCORTISONE BUTYRATE [Suspect]
     Active Substance: HYDROCORTISONE BUTYRATE
  4. MYOCHRYSINE [Suspect]
     Active Substance: GOLD SODIUM THIOMALATE
     Indication: Rheumatoid arthritis
     Dosage: 1 DOSAGE FORM, Q24H
     Route: 050
  5. RIBOFLAVIN [Suspect]
     Active Substance: RIBOFLAVIN
     Indication: Product used for unknown indication
  6. ALENDRONATE SODIUM [Suspect]
     Active Substance: ALENDRONATE SODIUM
     Indication: Rheumatoid arthritis
  7. ALENDRONATE SODIUM [Suspect]
     Active Substance: ALENDRONATE SODIUM
     Indication: Product used for unknown indication
  8. ALENDRONATE SODIUM [Suspect]
     Active Substance: ALENDRONATE SODIUM
     Route: 050
  9. ALENDRONATE SODIUM [Suspect]
     Active Substance: ALENDRONATE SODIUM
     Route: 050
  10. ALENDRONATE SODIUM [Suspect]
     Active Substance: ALENDRONATE SODIUM
  11. ALENDRONATE SODIUM [Suspect]
     Active Substance: ALENDRONATE SODIUM
     Route: 050
  12. ALENDRONATE SODIUM [Suspect]
     Active Substance: ALENDRONATE SODIUM
     Route: 050
  13. ALENDRONATE SODIUM [Suspect]
     Active Substance: ALENDRONATE SODIUM
  14. PREDNISONE [Suspect]
     Active Substance: PREDNISONE
     Indication: Rheumatoid arthritis
  15. PREDNISONE [Suspect]
     Active Substance: PREDNISONE
     Dosage: 50 MG, QD
     Route: 050
  16. PREDNISONE [Suspect]
     Active Substance: PREDNISONE
  17. PREDNISONE [Suspect]
     Active Substance: PREDNISONE
     Dosage: UNK UNK, QD
  18. PREDNISONE [Suspect]
     Active Substance: PREDNISONE
  19. PREDNISONE [Suspect]
     Active Substance: PREDNISONE
  20. PREDNISONE [Suspect]
     Active Substance: PREDNISONE
  21. METHOTREXATE [Concomitant]
     Active Substance: METHOTREXATE
     Indication: Product used for unknown indication
  22. METHOTREXATE [Concomitant]
     Active Substance: METHOTREXATE
  23. RITUXIMAB [Suspect]
     Active Substance: RITUXIMAB
     Indication: Rheumatoid arthritis
  24. RITUXIMAB [Suspect]
     Active Substance: RITUXIMAB
     Route: 050
  25. RITUXIMAB [Suspect]
     Active Substance: RITUXIMAB
     Route: 050
  26. RITUXIMAB [Suspect]
     Active Substance: RITUXIMAB
     Route: 050
  27. RITUXIMAB [Suspect]
     Active Substance: RITUXIMAB
     Route: 050
  28. RITUXIMAB [Suspect]
     Active Substance: RITUXIMAB
     Route: 050
  29. RITUXIMAB [Suspect]
     Active Substance: RITUXIMAB
     Route: 050
  30. RITUXIMAB [Suspect]
     Active Substance: RITUXIMAB
     Route: 050
  31. RITUXIMAB [Suspect]
     Active Substance: RITUXIMAB
     Dosage: 2000 MG, QD
  32. RITUXIMAB [Suspect]
     Active Substance: RITUXIMAB
     Route: 050
  33. RITUXIMAB [Suspect]
     Active Substance: RITUXIMAB
     Route: 050
  34. RITUXIMAB [Suspect]
     Active Substance: RITUXIMAB
  35. RITUXIMAB [Suspect]
     Active Substance: RITUXIMAB
  36. RITUXIMAB [Suspect]
     Active Substance: RITUXIMAB
  37. RITUXIMAB [Suspect]
     Active Substance: RITUXIMAB
  38. LEFLUNOMIDE [Suspect]
     Active Substance: LEFLUNOMIDE
     Indication: Product used for unknown indication
  39. LEFLUNOMIDE [Suspect]
     Active Substance: LEFLUNOMIDE
     Indication: Rheumatoid arthritis
  40. LEFLUNOMIDE [Suspect]
     Active Substance: LEFLUNOMIDE
  41. LEFLUNOMIDE [Suspect]
     Active Substance: LEFLUNOMIDE
     Dosage: 10 MG, Q24H
     Route: 050
  42. LEFLUNOMIDE [Suspect]
     Active Substance: LEFLUNOMIDE
     Indication: Rheumatoid arthritis
  43. LEFLUNOMIDE [Suspect]
     Active Substance: LEFLUNOMIDE
     Indication: Product used for unknown indication
  44. LEFLUNOMIDE [Suspect]
     Active Substance: LEFLUNOMIDE
  45. LEFLUNOMIDE [Suspect]
     Active Substance: LEFLUNOMIDE
     Route: 050
  46. LEFLUNOMIDE [Suspect]
     Active Substance: LEFLUNOMIDE
     Route: 050
  47. LEFLUNOMIDE [Suspect]
     Active Substance: LEFLUNOMIDE
  48. FLUMETHASONE PIVALATE [Suspect]
     Active Substance: FLUMETHASONE PIVALATE
     Indication: Product used for unknown indication
     Route: 050
  49. FLUMETHASONE PIVALATE [Suspect]
     Active Substance: FLUMETHASONE PIVALATE
     Route: 050
  50. FLUMETHASONE PIVALATE [Suspect]
     Active Substance: FLUMETHASONE PIVALATE
  51. FLUMETHASONE PIVALATE [Suspect]
     Active Substance: FLUMETHASONE PIVALATE
  52. INFLIXIMAB [Suspect]
     Active Substance: INFLIXIMAB
     Indication: Rheumatoid arthritis
     Route: 050
  53. INFLIXIMAB [Suspect]
     Active Substance: INFLIXIMAB
     Route: 050
  54. INFLIXIMAB [Suspect]
     Active Substance: INFLIXIMAB
     Route: 050
  55. OTEZLA [Suspect]
     Active Substance: APREMILAST
     Indication: Rheumatoid arthritis
     Route: 050
  56. OTEZLA [Suspect]
     Active Substance: APREMILAST
     Route: 050
  57. NUCALA [Suspect]
     Active Substance: MEPOLIZUMAB
     Indication: Product used for unknown indication
  58. NUCALA [Suspect]
     Active Substance: MEPOLIZUMAB
  59. ARAVA [Suspect]
     Active Substance: LEFLUNOMIDE
     Indication: Product used for unknown indication
  60. ARAVA [Suspect]
     Active Substance: LEFLUNOMIDE
     Indication: Rheumatoid arthritis
  61. ARAVA [Suspect]
     Active Substance: LEFLUNOMIDE
     Route: 050
  62. ARAVA [Suspect]
     Active Substance: LEFLUNOMIDE
  63. ARAVA [Suspect]
     Active Substance: LEFLUNOMIDE
  64. ADALIMUMAB [Suspect]
     Active Substance: ADALIMUMAB
     Indication: Rheumatoid arthritis
     Dosage: 40 MG, Q2W
     Route: 050
  65. ADALIMUMAB [Suspect]
     Active Substance: ADALIMUMAB
     Route: 050
  66. ADALIMUMAB [Suspect]
     Active Substance: ADALIMUMAB
  67. ADALIMUMAB [Suspect]
     Active Substance: ADALIMUMAB
     Route: 050
  68. DESOXIMETASONE [Suspect]
     Active Substance: DESOXIMETASONE
     Indication: Product used for unknown indication
     Route: 050
  69. DESOXIMETASONE [Suspect]
     Active Substance: DESOXIMETASONE
     Indication: Rheumatoid arthritis
  70. DESOXIMETASONE [Suspect]
     Active Substance: DESOXIMETASONE
  71. DESOXIMETASONE [Suspect]
     Active Substance: DESOXIMETASONE
     Route: 050
  72. DESOXIMETASONE [Suspect]
     Active Substance: DESOXIMETASONE
     Route: 050
  73. DESOXIMETASONE [Suspect]
     Active Substance: DESOXIMETASONE
     Route: 050
  74. DESOXIMETASONE [Suspect]
     Active Substance: DESOXIMETASONE
     Route: 050
  75. MINOCYCLINE HYDROCHLORIDE [Suspect]
     Active Substance: MINOCYCLINE HYDROCHLORIDE
     Indication: Rheumatoid arthritis
  76. MINOCYCLINE HYDROCHLORIDE [Suspect]
     Active Substance: MINOCYCLINE HYDROCHLORIDE
  77. APREMILAST [Suspect]
     Active Substance: APREMILAST
     Indication: Product used for unknown indication
  78. APREMILAST [Suspect]
     Active Substance: APREMILAST
  79. APREMILAST [Suspect]
     Active Substance: APREMILAST
     Dosage: 30 MG, Q12H
  80. APREMILAST [Suspect]
     Active Substance: APREMILAST
     Dosage: 3 MG, Q12H
  81. SIRUKUMAB [Suspect]
     Active Substance: SIRUKUMAB
     Indication: Product used for unknown indication
  82. SIRUKUMAB [Suspect]
     Active Substance: SIRUKUMAB
  83. OXYCODONE [Suspect]
     Active Substance: OXYCODONE
     Indication: Product used for unknown indication
  84. OXYCODONE [Suspect]
     Active Substance: OXYCODONE
  85. GOLIMUMAB [Suspect]
     Active Substance: GOLIMUMAB
     Indication: Rheumatoid arthritis
  86. GOLIMUMAB [Suspect]
     Active Substance: GOLIMUMAB
  87. PHTHALYLSULFATHIAZOLE [Suspect]
     Active Substance: PHTHALYLSULFATHIAZOLE
     Indication: Rheumatoid arthritis
     Dosage: 1000 MG, Q12H
  88. PHTHALYLSULFATHIAZOLE [Suspect]
     Active Substance: PHTHALYLSULFATHIAZOLE
     Indication: Product used for unknown indication
     Route: 050
  89. PHTHALYLSULFATHIAZOLE [Suspect]
     Active Substance: PHTHALYLSULFATHIAZOLE
     Route: 050
  90. PHTHALYLSULFATHIAZOLE [Suspect]
     Active Substance: PHTHALYLSULFATHIAZOLE
     Route: 050
  91. PHTHALYLSULFATHIAZOLE [Suspect]
     Active Substance: PHTHALYLSULFATHIAZOLE
     Route: 050
  92. PERIOGARD [Suspect]
     Active Substance: CHLORHEXIDINE GLUCONATE
     Indication: Product used for unknown indication
  93. PERIOGARD [Suspect]
     Active Substance: CHLORHEXIDINE GLUCONATE
  94. PERIOGARD [Suspect]
     Active Substance: CHLORHEXIDINE GLUCONATE
     Route: 050
  95. PERIOGARD [Suspect]
     Active Substance: CHLORHEXIDINE GLUCONATE
     Route: 050
  96. BERINERT [Suspect]
     Active Substance: HUMAN C1-ESTERASE INHIBITOR
     Indication: Product used for unknown indication
  97. BERINERT [Suspect]
     Active Substance: HUMAN C1-ESTERASE INHIBITOR
  98. OXYCODONE TEREPHTHALATE [Suspect]
     Active Substance: OXYCODONE TEREPHTHALATE
     Indication: Product used for unknown indication
  99. OXYCODONE TEREPHTHALATE [Suspect]
     Active Substance: OXYCODONE TEREPHTHALATE
  100. ENBREL [Suspect]
     Active Substance: ETANERCEPT
     Indication: Rheumatoid arthritis
     Route: 050
  101. ENBREL [Suspect]
     Active Substance: ETANERCEPT
     Indication: Product used for unknown indication
     Route: 050
  102. ENBREL [Suspect]
     Active Substance: ETANERCEPT
  103. ENBREL [Suspect]
     Active Substance: ETANERCEPT
  104. ENBREL [Suspect]
     Active Substance: ETANERCEPT
     Route: 050
  105. ENBREL [Suspect]
     Active Substance: ETANERCEPT
     Route: 050
  106. ENBREL [Suspect]
     Active Substance: ETANERCEPT
     Route: 050
  107. MYRBETRIQ [Suspect]
     Active Substance: MIRABEGRON
     Indication: Product used for unknown indication
     Dosage: 1 DOSAGE FORM, Q24H
  108. MYRBETRIQ [Suspect]
     Active Substance: MIRABEGRON
  109. ERELZI [Suspect]
     Active Substance: ETANERCEPT-SZZS
     Indication: Rheumatoid arthritis
  110. ERELZI [Suspect]
     Active Substance: ETANERCEPT-SZZS
  111. TRAMADOL HYDROCHLORIDE [Suspect]
     Active Substance: TRAMADOL HYDROCHLORIDE
     Indication: Product used for unknown indication
  112. TRAMADOL HYDROCHLORIDE [Suspect]
     Active Substance: TRAMADOL HYDROCHLORIDE
  113. CERTOLIZUMAB PEGOL [Suspect]
     Active Substance: CERTOLIZUMAB PEGOL
     Indication: Rheumatoid arthritis
     Route: 050
  114. CERTOLIZUMAB PEGOL [Suspect]
     Active Substance: CERTOLIZUMAB PEGOL
     Indication: Product used for unknown indication
     Route: 050
  115. CERTOLIZUMAB PEGOL [Suspect]
     Active Substance: CERTOLIZUMAB PEGOL
  116. CERTOLIZUMAB PEGOL [Suspect]
     Active Substance: CERTOLIZUMAB PEGOL
  117. CERTOLIZUMAB PEGOL [Suspect]
     Active Substance: CERTOLIZUMAB PEGOL
     Route: 050
  118. CERTOLIZUMAB PEGOL [Suspect]
     Active Substance: CERTOLIZUMAB PEGOL
     Route: 050
  119. CERTOLIZUMAB PEGOL [Suspect]
     Active Substance: CERTOLIZUMAB PEGOL
     Route: 050
  120. ERGOCALCIFEROL [Suspect]
     Active Substance: ERGOCALCIFEROL
     Indication: Rheumatoid arthritis
  121. COSENTYX [Suspect]
     Active Substance: SECUKINUMAB
     Indication: Psoriatic arthropathy
  122. COSENTYX [Suspect]
     Active Substance: SECUKINUMAB
     Indication: Rheumatoid arthritis
  123. COSENTYX [Suspect]
     Active Substance: SECUKINUMAB
     Indication: Product used for unknown indication
  124. ATOMOXETINE [Suspect]
     Active Substance: ATOMOXETINE
     Indication: Migraine
  125. ATOMOXETINE [Suspect]
     Active Substance: ATOMOXETINE
  126. ZINC [Suspect]
     Active Substance: ZINC
     Indication: Rheumatoid arthritis
  127. ZINC [Suspect]
     Active Substance: ZINC
  128. CELECOXIB [Suspect]
     Active Substance: CELECOXIB
     Indication: Product used for unknown indication
     Route: 050
  129. CELECOXIB [Suspect]
     Active Substance: CELECOXIB
  130. CELECOXIB [Suspect]
     Active Substance: CELECOXIB
     Dosage: 1 DOSAGE FORM, Q24H
     Route: 050
  131. CELECOXIB [Suspect]
     Active Substance: CELECOXIB
     Dosage: 2 DOSAGE FORM, QD
     Route: 050
  132. RANITIDINE HYDROCHLORIDE [Suspect]
     Active Substance: RANITIDINE HYDROCHLORIDE
     Indication: Product used for unknown indication
  133. RANITIDINE HYDROCHLORIDE [Suspect]
     Active Substance: RANITIDINE HYDROCHLORIDE
  134. RANITIDINE HYDROCHLORIDE [Suspect]
     Active Substance: RANITIDINE HYDROCHLORIDE
  135. RANITIDINE HYDROCHLORIDE [Suspect]
     Active Substance: RANITIDINE HYDROCHLORIDE
  136. LAMICTAL [Suspect]
     Active Substance: LAMOTRIGINE
     Indication: Product used for unknown indication
     Route: 050
  137. LAMICTAL [Suspect]
     Active Substance: LAMOTRIGINE
     Route: 050
  138. LAMICTAL [Suspect]
     Active Substance: LAMOTRIGINE
     Route: 050
  139. LAMICTAL [Suspect]
     Active Substance: LAMOTRIGINE
     Route: 050
  140. DICLOFENAC SODIUM [Suspect]
     Active Substance: DICLOFENAC SODIUM
     Indication: Rheumatoid arthritis
  141. DICLOFENAC SODIUM [Suspect]
     Active Substance: DICLOFENAC SODIUM
  142. DICLOFENAC SODIUM [Suspect]
     Active Substance: DICLOFENAC SODIUM
  143. REMICADE [Suspect]
     Active Substance: INFLIXIMAB
     Indication: Product used for unknown indication
     Dosage: 500 MG, Q24H
     Route: 050
  144. REMICADE [Suspect]
     Active Substance: INFLIXIMAB
     Indication: Rheumatoid arthritis
     Dosage: 500 MG, Q12H
  145. REMICADE [Suspect]
     Active Substance: INFLIXIMAB
  146. REMICADE [Suspect]
     Active Substance: INFLIXIMAB
     Route: 050
  147. REMICADE [Suspect]
     Active Substance: INFLIXIMAB
     Route: 050
  148. REMICADE [Suspect]
     Active Substance: INFLIXIMAB
     Route: 050
  149. REMICADE [Suspect]
     Active Substance: INFLIXIMAB
     Route: 050
  150. REMICADE [Suspect]
     Active Substance: INFLIXIMAB
  151. CHLORHEXIDINE GLUCONATE [Suspect]
     Active Substance: CHLORHEXIDINE GLUCONATE
     Indication: Product used for unknown indication
  152. CHLORHEXIDINE GLUCONATE [Suspect]
     Active Substance: CHLORHEXIDINE GLUCONATE
  153. CHLORHEXIDINE GLUCONATE [Suspect]
     Active Substance: CHLORHEXIDINE GLUCONATE
  154. CHLORHEXIDINE GLUCONATE [Suspect]
     Active Substance: CHLORHEXIDINE GLUCONATE
  155. ISOPROPYL ALCOHOL [Suspect]
     Active Substance: ISOPROPYL ALCOHOL
     Indication: Product used for unknown indication
  156. ISOPROPYL ALCOHOL [Suspect]
     Active Substance: ISOPROPYL ALCOHOL
  157. KEVZARA [Suspect]
     Active Substance: SARILUMAB
     Indication: Product used for unknown indication
  158. KEVZARA [Suspect]
     Active Substance: SARILUMAB
  159. PREDNISONE [Suspect]
     Active Substance: PREDNISONE
     Indication: Product used for unknown indication
  160. PREDNISONE [Suspect]
     Active Substance: PREDNISONE
     Indication: Rheumatoid arthritis
  161. PREDNISONE [Suspect]
     Active Substance: PREDNISONE
     Dosage: 50 MG, Q24H
     Route: 050
  162. PREDNISONE [Suspect]
     Active Substance: PREDNISONE
     Dosage: UNK UNK, Q24H
     Route: 050
  163. PREDNISONE [Suspect]
     Active Substance: PREDNISONE
     Dosage: 50 MG, Q24H
     Route: 050
  164. PREDNISONE [Suspect]
     Active Substance: PREDNISONE
     Route: 050
  165. PREDNISONE [Suspect]
     Active Substance: PREDNISONE
     Route: 050
  166. THIAMINE HYDROCHLORIDE [Suspect]
     Active Substance: THIAMINE HYDROCHLORIDE
     Indication: Product used for unknown indication
  167. RANITIDINE [Suspect]
     Active Substance: RANITIDINE
     Indication: Product used for unknown indication
  168. RANITIDINE [Suspect]
     Active Substance: RANITIDINE
  169. RAMIPRIL [Suspect]
     Active Substance: RAMIPRIL
     Indication: Rheumatoid arthritis
     Route: 050
  170. RAMIPRIL [Suspect]
     Active Substance: RAMIPRIL
  171. RAMIPRIL [Suspect]
     Active Substance: RAMIPRIL
  172. RAMIPRIL [Suspect]
     Active Substance: RAMIPRIL
     Route: 050
  173. RAMIPRIL [Suspect]
     Active Substance: RAMIPRIL
     Route: 050
  174. RAMIPRIL [Suspect]
     Active Substance: RAMIPRIL
     Route: 050
  175. NAPROXEN [Concomitant]
     Active Substance: NAPROXEN
     Indication: Product used for unknown indication
  176. NAPROXEN [Concomitant]
     Active Substance: NAPROXEN
  177. PSEUDOEPHEDRINE [Suspect]
     Active Substance: PSEUDOEPHEDRINE
     Indication: Product used for unknown indication
  178. GOLD SODIUM THIOMALATE [Suspect]
     Active Substance: GOLD SODIUM THIOMALATE
     Indication: Product used for unknown indication
     Route: 050
  179. GOLD SODIUM THIOMALATE [Suspect]
     Active Substance: GOLD SODIUM THIOMALATE
     Route: 050
  180. GOLD SODIUM THIOMALATE [Suspect]
     Active Substance: GOLD SODIUM THIOMALATE
     Route: 050
  181. GOLD SODIUM THIOMALATE [Suspect]
     Active Substance: GOLD SODIUM THIOMALATE
     Route: 050
  182. TRIAMCINOLONE [Suspect]
     Active Substance: TRIAMCINOLONE
     Indication: Rheumatoid arthritis
     Route: 050
  183. TRIAMCINOLONE [Suspect]
     Active Substance: TRIAMCINOLONE
     Route: 050
  184. TRIAMCINOLONE [Suspect]
     Active Substance: TRIAMCINOLONE
     Route: 050
  185. TRIAMCINOLONE [Suspect]
     Active Substance: TRIAMCINOLONE
     Route: 050
  186. FOSAMAX [Suspect]
     Active Substance: ALENDRONATE SODIUM
     Indication: Product used for unknown indication
     Route: 050
  187. FOSAMAX [Suspect]
     Active Substance: ALENDRONATE SODIUM
     Indication: Rheumatoid arthritis
     Route: 050
  188. FOSAMAX [Suspect]
     Active Substance: ALENDRONATE SODIUM
     Route: 050
  189. FOSAMAX [Suspect]
     Active Substance: ALENDRONATE SODIUM
     Route: 050
  190. FOSAMAX [Suspect]
     Active Substance: ALENDRONATE SODIUM
     Route: 050
  191. FOSAMAX [Suspect]
     Active Substance: ALENDRONATE SODIUM
     Route: 050
  192. FOSAMAX [Suspect]
     Active Substance: ALENDRONATE SODIUM
     Route: 050
  193. FOSAMAX [Suspect]
     Active Substance: ALENDRONATE SODIUM
     Route: 050
  194. CANDESARTAN [Suspect]
     Active Substance: CANDESARTAN
     Indication: Migraine
     Route: 050
  195. CANDESARTAN [Suspect]
     Active Substance: CANDESARTAN
     Route: 050
  196. SULFAMETHOXAZOLE\TRIMETHOPRIM [Suspect]
     Active Substance: SULFAMETHOXAZOLE\TRIMETHOPRIM
     Indication: Product used for unknown indication
  197. SULFAMETHOXAZOLE\TRIMETHOPRIM [Suspect]
     Active Substance: SULFAMETHOXAZOLE\TRIMETHOPRIM
  198. SULFASALAZINE [Suspect]
     Active Substance: SULFASALAZINE
     Indication: Rheumatoid arthritis
     Route: 050
  199. SULFASALAZINE [Suspect]
     Active Substance: SULFASALAZINE
     Route: 050
  200. SULFASALAZINE [Suspect]
     Active Substance: SULFASALAZINE
     Indication: Rheumatoid arthritis
     Route: 050
  201. SULFASALAZINE [Suspect]
     Active Substance: SULFASALAZINE
     Route: 050
  202. SULFASALAZINE [Suspect]
     Active Substance: SULFASALAZINE
  203. SULFASALAZINE [Suspect]
     Active Substance: SULFASALAZINE
     Dosage: 2 MG, BID
  204. SULFASALAZINE [Suspect]
     Active Substance: SULFASALAZINE
     Route: 050
  205. SULFASALAZINE [Suspect]
     Active Substance: SULFASALAZINE
     Route: 050
  206. SULFASALAZINE [Suspect]
     Active Substance: SULFASALAZINE
     Route: 050
  207. SULFASALAZINE [Suspect]
     Active Substance: SULFASALAZINE
     Dosage: 2 G, QD
  208. SULFASALAZINE [Suspect]
     Active Substance: SULFASALAZINE
  209. SULFASALAZINE [Suspect]
     Active Substance: SULFASALAZINE
  210. SULFASALAZINE [Suspect]
     Active Substance: SULFASALAZINE
     Route: 050
  211. SULFASALAZINE [Suspect]
     Active Substance: SULFASALAZINE
  212. SULFASALAZINE [Suspect]
     Active Substance: SULFASALAZINE
     Dosage: 300 MG, QD
  213. SULFASALAZINE [Suspect]
     Active Substance: SULFASALAZINE
     Dosage: 1 DOSAGE FORM, BID
     Route: 050
  214. SULFASALAZINE [Suspect]
     Active Substance: SULFASALAZINE
     Dosage: UNK UNK, BID (1 EVERY 12 HOURS)
     Route: 050
  215. SULFASALAZINE [Suspect]
     Active Substance: SULFASALAZINE
     Route: 050
  216. SULFASALAZINE [Suspect]
     Active Substance: SULFASALAZINE
  217. SULFASALAZINE [Suspect]
     Active Substance: SULFASALAZINE
     Route: 050
  218. SULFASALAZINE [Suspect]
     Active Substance: SULFASALAZINE
     Route: 050
  219. SULFASALAZINE [Suspect]
     Active Substance: SULFASALAZINE
     Dosage: 1000 MG, BID (1 EVERY 12 HOURS)
  220. SULFASALAZINE [Suspect]
     Active Substance: SULFASALAZINE
     Route: 050
  221. SULFASALAZINE [Suspect]
     Active Substance: SULFASALAZINE
     Route: 050
  222. SULFASALAZINE [Suspect]
     Active Substance: SULFASALAZINE
     Route: 050
  223. SULFASALAZINE [Suspect]
     Active Substance: SULFASALAZINE
     Route: 050
  224. SULFASALAZINE [Suspect]
     Active Substance: SULFASALAZINE
     Dosage: 1 G, QD
  225. PHENYLEPHRINE HYDROCHLORIDE [Suspect]
     Active Substance: PHENYLEPHRINE HYDROCHLORIDE
     Indication: Rheumatoid arthritis
  226. GOLD [Suspect]
     Active Substance: GOLD
     Indication: Product used for unknown indication
  227. GOLD [Suspect]
     Active Substance: GOLD
  228. CETIRIZINE HYDROCHLORIDE\PSEUDOEPHEDRINE HYDROCHLORIDE [Suspect]
     Active Substance: CETIRIZINE HYDROCHLORIDE\PSEUDOEPHEDRINE HYDROCHLORIDE
     Indication: Rheumatoid arthritis
  229. CETIRIZINE HYDROCHLORIDE\PSEUDOEPHEDRINE HYDROCHLORIDE [Suspect]
     Active Substance: CETIRIZINE HYDROCHLORIDE\PSEUDOEPHEDRINE HYDROCHLORIDE
  230. CETIRIZINE HYDROCHLORIDE\PSEUDOEPHEDRINE HYDROCHLORIDE [Suspect]
     Active Substance: CETIRIZINE HYDROCHLORIDE\PSEUDOEPHEDRINE HYDROCHLORIDE
  231. CETIRIZINE HYDROCHLORIDE\PSEUDOEPHEDRINE HYDROCHLORIDE [Suspect]
     Active Substance: CETIRIZINE HYDROCHLORIDE\PSEUDOEPHEDRINE HYDROCHLORIDE
  232. CETIRIZINE HYDROCHLORIDE\PSEUDOEPHEDRINE HYDROCHLORIDE [Suspect]
     Active Substance: CETIRIZINE HYDROCHLORIDE\PSEUDOEPHEDRINE HYDROCHLORIDE
     Route: 050
  233. CETIRIZINE HYDROCHLORIDE\PSEUDOEPHEDRINE HYDROCHLORIDE [Suspect]
     Active Substance: CETIRIZINE HYDROCHLORIDE\PSEUDOEPHEDRINE HYDROCHLORIDE
     Route: 050
  234. DESOGESTREL\ETHINYL ESTRADIOL [Concomitant]
     Active Substance: DESOGESTREL\ETHINYL ESTRADIOL
     Indication: Product used for unknown indication
  235. DESOGESTREL\ETHINYL ESTRADIOL [Concomitant]
     Active Substance: DESOGESTREL\ETHINYL ESTRADIOL
  236. FLUMETHASONE [Suspect]
     Active Substance: FLUMETHASONE
     Indication: Product used for unknown indication
  237. FLUMETHASONE [Suspect]
     Active Substance: FLUMETHASONE
  238. NAPROXEN SODIUM [Suspect]
     Active Substance: NAPROXEN SODIUM
     Indication: Rheumatoid arthritis
     Dosage: 500 MG, Q12H
  239. ALENDRONIC ACID [Suspect]
     Active Substance: ALENDRONIC ACID
     Indication: Rheumatoid arthritis
     Route: 050
  240. ALENDRONIC ACID [Suspect]
     Active Substance: ALENDRONIC ACID
  241. ALENDRONIC ACID [Suspect]
     Active Substance: ALENDRONIC ACID
  242. ALENDRONIC ACID [Suspect]
     Active Substance: ALENDRONIC ACID
     Route: 050
  243. FOLIC ACID [Suspect]
     Active Substance: FOLIC ACID
     Indication: Rheumatoid arthritis
     Route: 050
  244. FOLIC ACID [Suspect]
     Active Substance: FOLIC ACID
     Indication: Product used for unknown indication
     Route: 050
  245. FOLIC ACID [Suspect]
     Active Substance: FOLIC ACID
  246. FOLIC ACID [Suspect]
     Active Substance: FOLIC ACID
  247. FOLIC ACID [Suspect]
     Active Substance: FOLIC ACID
     Route: 050
  248. FOLIC ACID [Suspect]
     Active Substance: FOLIC ACID
     Route: 050
  249. FOLIC ACID [Suspect]
     Active Substance: FOLIC ACID
  250. FOLIC ACID [Suspect]
     Active Substance: FOLIC ACID
  251. NICOTINAMIDE [Suspect]
     Active Substance: NIACINAMIDE
     Indication: Product used for unknown indication
  252. AIMOVIG [Suspect]
     Active Substance: ERENUMAB-AOOE
     Indication: Product used for unknown indication
  253. AIMOVIG [Suspect]
     Active Substance: ERENUMAB-AOOE
     Indication: Migraine
  254. ORENCIA [Suspect]
     Active Substance: ABATACEPT
     Indication: Rheumatoid arthritis
  255. ORENCIA [Suspect]
     Active Substance: ABATACEPT
     Indication: Product used for unknown indication
     Route: 050
  256. ORENCIA [Suspect]
     Active Substance: ABATACEPT
  257. ORENCIA [Suspect]
     Active Substance: ABATACEPT
     Route: 050
  258. ORENCIA [Suspect]
     Active Substance: ABATACEPT
     Route: 050
  259. ORENCIA [Suspect]
     Active Substance: ABATACEPT
     Route: 050
  260. ORENCIA [Suspect]
     Active Substance: ABATACEPT
  261. ORENCIA [Suspect]
     Active Substance: ABATACEPT
     Route: 050
  262. ORENCIA [Suspect]
     Active Substance: ABATACEPT
     Route: 050
  263. ORENCIA [Suspect]
     Active Substance: ABATACEPT
     Dosage: 125 MG, QW
     Route: 050
  264. ORENCIA [Suspect]
     Active Substance: ABATACEPT
  265. ORENCIA [Suspect]
     Active Substance: ABATACEPT
  266. STELARA [Suspect]
     Active Substance: USTEKINUMAB
     Indication: Rheumatoid arthritis
     Route: 050
  267. STELARA [Suspect]
     Active Substance: USTEKINUMAB
     Route: 050
  268. STELARA [Suspect]
     Active Substance: USTEKINUMAB
     Route: 050
  269. METHOTREXATE [Suspect]
     Active Substance: METHOTREXATE
     Indication: Rheumatoid arthritis
  270. METHOTREXATE [Suspect]
     Active Substance: METHOTREXATE
     Dosage: 15 MG, QW
     Route: 050
  271. METHOTREXATE [Suspect]
     Active Substance: METHOTREXATE
     Route: 050
  272. METHOTREXATE [Suspect]
     Active Substance: METHOTREXATE
     Route: 050
  273. METHOTREXATE [Suspect]
     Active Substance: METHOTREXATE
     Route: 050
  274. METHOTREXATE [Suspect]
     Active Substance: METHOTREXATE
     Dosage: 20 MG, QW
     Route: 050
  275. METHOTREXATE [Suspect]
     Active Substance: METHOTREXATE
     Route: 050
  276. METHOTREXATE [Suspect]
     Active Substance: METHOTREXATE
  277. METHOTREXATE [Suspect]
     Active Substance: METHOTREXATE
     Route: 050
  278. METHOTREXATE [Suspect]
     Active Substance: METHOTREXATE
     Dosage: 20 MG, Q24H
     Route: 050
  279. METHOTREXATE [Suspect]
     Active Substance: METHOTREXATE
     Dosage: 50 MG, QW
     Route: 050
  280. METHOTREXATE [Suspect]
     Active Substance: METHOTREXATE
     Dosage: 15 MG, QW
     Route: 050
  281. CIMZIA [Suspect]
     Active Substance: CERTOLIZUMAB PEGOL
     Indication: Rheumatoid arthritis
     Route: 050
  282. CIMZIA [Suspect]
     Active Substance: CERTOLIZUMAB PEGOL
     Indication: Product used for unknown indication
  283. CIMZIA [Suspect]
     Active Substance: CERTOLIZUMAB PEGOL
     Route: 050
  284. CIMZIA [Suspect]
     Active Substance: CERTOLIZUMAB PEGOL
     Route: 050
  285. CIMZIA [Suspect]
     Active Substance: CERTOLIZUMAB PEGOL
     Route: 050
  286. CIMZIA [Suspect]
     Active Substance: CERTOLIZUMAB PEGOL
     Route: 050
  287. CIMZIA [Suspect]
     Active Substance: CERTOLIZUMAB PEGOL
     Route: 050
  288. CIMZIA [Suspect]
     Active Substance: CERTOLIZUMAB PEGOL
     Route: 050
  289. CIMZIA [Suspect]
     Active Substance: CERTOLIZUMAB PEGOL
  290. CIMZIA [Suspect]
     Active Substance: CERTOLIZUMAB PEGOL
     Route: 050
  291. ACTEMRA [Suspect]
     Active Substance: TOCILIZUMAB
     Indication: Product used for unknown indication
  292. ACTEMRA [Suspect]
     Active Substance: TOCILIZUMAB
     Indication: Rheumatoid arthritis
  293. ACTEMRA [Suspect]
     Active Substance: TOCILIZUMAB
     Route: 050
  294. ACTEMRA [Suspect]
     Active Substance: TOCILIZUMAB
     Route: 050
  295. ACTEMRA [Suspect]
     Active Substance: TOCILIZUMAB
     Route: 050
  296. ACTEMRA [Suspect]
     Active Substance: TOCILIZUMAB
     Route: 050
  297. ACTEMRA [Suspect]
     Active Substance: TOCILIZUMAB
     Route: 050
  298. DOMPERIDONE MALEATE [Suspect]
     Active Substance: DOMPERIDONE MALEATE
     Indication: Product used for unknown indication
  299. DOMPERIDONE MALEATE [Suspect]
     Active Substance: DOMPERIDONE MALEATE
  300. MINOCYCLINE [Suspect]
     Active Substance: MINOCYCLINE HYDROCHLORIDE
     Indication: Rheumatoid arthritis
  301. MINOCYCLINE [Suspect]
     Active Substance: MINOCYCLINE HYDROCHLORIDE
     Indication: Product used for unknown indication
  302. MINOCYCLINE [Suspect]
     Active Substance: MINOCYCLINE HYDROCHLORIDE
  303. HYDROCORTISONE [Suspect]
     Active Substance: HYDROCORTISONE
     Indication: Product used for unknown indication
  304. HYDROCORTISONE [Suspect]
     Active Substance: HYDROCORTISONE
     Indication: Rheumatoid arthritis
  305. HYDROCORTISONE [Suspect]
     Active Substance: HYDROCORTISONE
  306. NAPROSYN [Suspect]
     Active Substance: NAPROXEN
     Indication: Product used for unknown indication
  307. NAPROSYN [Suspect]
     Active Substance: NAPROXEN
  308. CETIRIZINE HYDROCHLORIDE [Suspect]
     Active Substance: CETIRIZINE HYDROCHLORIDE
     Indication: Product used for unknown indication
     Route: 050
  309. CETIRIZINE HYDROCHLORIDE [Suspect]
     Active Substance: CETIRIZINE HYDROCHLORIDE
     Indication: Rheumatoid arthritis
     Route: 050
  310. CETIRIZINE HYDROCHLORIDE [Suspect]
     Active Substance: CETIRIZINE HYDROCHLORIDE
  311. CETIRIZINE HYDROCHLORIDE [Suspect]
     Active Substance: CETIRIZINE HYDROCHLORIDE
     Route: 050
  312. CETIRIZINE HYDROCHLORIDE [Suspect]
     Active Substance: CETIRIZINE HYDROCHLORIDE
  313. CETIRIZINE HYDROCHLORIDE [Suspect]
     Active Substance: CETIRIZINE HYDROCHLORIDE
     Route: 050
  314. CETIRIZINE HYDROCHLORIDE [Suspect]
     Active Substance: CETIRIZINE HYDROCHLORIDE
  315. CETIRIZINE HYDROCHLORIDE [Suspect]
     Active Substance: CETIRIZINE HYDROCHLORIDE
  316. VITAMIN A [Suspect]
     Active Substance: VITAMIN A
     Indication: Product used for unknown indication
  317. METHYLPREDNISOLONE ACETATE [Suspect]
     Active Substance: METHYLPREDNISOLONE ACETATE
     Indication: Product used for unknown indication
  318. METHYLPREDNISOLONE ACETATE [Suspect]
     Active Substance: METHYLPREDNISOLONE ACETATE
  319. METHYLPREDNISOLONE ACETATE [Suspect]
     Active Substance: METHYLPREDNISOLONE ACETATE
  320. TOPIRAMATE [Suspect]
     Active Substance: TOPIRAMATE
     Indication: Migraine
     Dosage: 25 MG, QD
  321. TOPIRAMATE [Suspect]
     Active Substance: TOPIRAMATE
  322. TOPIRAMATE [Suspect]
     Active Substance: TOPIRAMATE
     Dosage: 3 MG, QD
  323. HYDROXYCHLOROQUINE SULFATE [Suspect]
     Active Substance: HYDROXYCHLOROQUINE SULFATE
     Indication: Product used for unknown indication
     Dosage: 200 MG, QD
  324. HYDROXYCHLOROQUINE SULFATE [Suspect]
     Active Substance: HYDROXYCHLOROQUINE SULFATE
     Indication: Rheumatoid arthritis
     Dosage: 20 MG, QD
     Route: 050
  325. HYDROXYCHLOROQUINE SULFATE [Suspect]
     Active Substance: HYDROXYCHLOROQUINE SULFATE
     Dosage: 600 MG, QD
     Route: 050
  326. HYDROXYCHLOROQUINE SULFATE [Suspect]
     Active Substance: HYDROXYCHLOROQUINE SULFATE
     Route: 050
  327. HYDROXYCHLOROQUINE SULFATE [Suspect]
     Active Substance: HYDROXYCHLOROQUINE SULFATE
     Dosage: 400 MG, QD
  328. HYDROXYCHLOROQUINE SULFATE [Suspect]
     Active Substance: HYDROXYCHLOROQUINE SULFATE
  329. BUTRANS [Suspect]
     Active Substance: BUPRENORPHINE
     Indication: Product used for unknown indication
  330. BUTRANS [Suspect]
     Active Substance: BUPRENORPHINE
  331. BOTULINUM TOXIN TYPE A [Suspect]
     Active Substance: BOTULINUM TOXIN TYPE A
     Indication: Product used for unknown indication
  332. BOTULINUM TOXIN TYPE A [Suspect]
     Active Substance: BOTULINUM TOXIN TYPE A
  333. ACETAMINOPHEN [Suspect]
     Active Substance: ACETAMINOPHEN
     Indication: Rheumatoid arthritis
  334. ACETAMINOPHEN [Suspect]
     Active Substance: ACETAMINOPHEN
  335. ACETAMINOPHEN [Suspect]
     Active Substance: ACETAMINOPHEN
  336. ACETAMINOPHEN [Suspect]
     Active Substance: ACETAMINOPHEN
  337. HUMIRA [Suspect]
     Active Substance: ADALIMUMAB
     Indication: Product used for unknown indication
     Route: 050
  338. HUMIRA [Suspect]
     Active Substance: ADALIMUMAB
     Indication: Rheumatoid arthritis
  339. HUMIRA [Suspect]
     Active Substance: ADALIMUMAB
  340. HUMIRA [Suspect]
     Active Substance: ADALIMUMAB
     Route: 050
  341. HUMIRA [Suspect]
     Active Substance: ADALIMUMAB
     Route: 050
  342. HUMIRA [Suspect]
     Active Substance: ADALIMUMAB
  343. GOLD SODIUM THIOMALATE [Suspect]
     Active Substance: GOLD SODIUM THIOMALATE
     Indication: Product used for unknown indication
  344. GOLD SODIUM THIOMALATE [Suspect]
     Active Substance: GOLD SODIUM THIOMALATE
  345. MEGLUMINE [Suspect]
     Active Substance: MEGLUMINE
     Indication: Rheumatoid arthritis
     Route: 050
  346. MEGLUMINE [Suspect]
     Active Substance: MEGLUMINE
     Route: 050
  347. DICLOFENAC SODIUM [Suspect]
     Active Substance: DICLOFENAC SODIUM
     Indication: Product used for unknown indication
     Route: 050
  348. DICLOFENAC SODIUM [Suspect]
     Active Substance: DICLOFENAC SODIUM
     Route: 050
  349. DICLOFENAC SODIUM [Suspect]
     Active Substance: DICLOFENAC SODIUM
  350. DICLOFENAC SODIUM [Suspect]
     Active Substance: DICLOFENAC SODIUM
  351. DICLOFENAC SODIUM [Suspect]
     Active Substance: DICLOFENAC SODIUM
  352. DICLOFENAC SODIUM [Suspect]
     Active Substance: DICLOFENAC SODIUM
  353. CALCIUM GLUBIONATE [Suspect]
     Active Substance: CALCIUM GLUBIONATE
     Indication: Product used for unknown indication
     Route: 050
  354. CALCIUM GLUBIONATE [Suspect]
     Active Substance: CALCIUM GLUBIONATE
     Route: 050
  355. HAIR KERATIN AMINO ACIDS GOLD COMPLEX [Suspect]
     Active Substance: HAIR KERATIN AMINO ACIDS GOLD COMPLEX
     Indication: Product used for unknown indication
  356. HAIR KERATIN AMINO ACIDS GOLD COMPLEX [Suspect]
     Active Substance: HAIR KERATIN AMINO ACIDS GOLD COMPLEX
  357. SIMPONI [Suspect]
     Active Substance: GOLIMUMAB
     Indication: Rheumatoid arthritis
     Route: 050
  358. SIMPONI [Suspect]
     Active Substance: GOLIMUMAB
     Route: 050
  359. SIMPONI [Suspect]
     Active Substance: GOLIMUMAB
     Route: 050
  360. SIMPONI [Suspect]
     Active Substance: GOLIMUMAB
     Route: 050
  361. SIMPONI [Suspect]
     Active Substance: GOLIMUMAB
     Route: 050
  362. SIMPONI [Suspect]
     Active Substance: GOLIMUMAB
     Route: 050
  363. SIMPONI [Suspect]
     Active Substance: GOLIMUMAB
     Route: 050
  364. XELJANZ [Suspect]
     Active Substance: TOFACITINIB CITRATE
     Indication: Rheumatoid arthritis
     Route: 050
  365. XELJANZ [Suspect]
     Active Substance: TOFACITINIB CITRATE
     Dosage: 10 MG, QD
  366. XELJANZ [Suspect]
     Active Substance: TOFACITINIB CITRATE
  367. XELJANZ [Suspect]
     Active Substance: TOFACITINIB CITRATE
     Dosage: 5 MG, BID
     Route: 050
  368. XELJANZ [Suspect]
     Active Substance: TOFACITINIB CITRATE
     Dosage: 5 MG, BID
     Route: 050
  369. XELJANZ [Suspect]
     Active Substance: TOFACITINIB CITRATE
     Route: 050
  370. XELJANZ [Suspect]
     Active Substance: TOFACITINIB CITRATE
  371. XELJANZ [Suspect]
     Active Substance: TOFACITINIB CITRATE
  372. XELJANZ [Suspect]
     Active Substance: TOFACITINIB CITRATE
  373. XELJANZ [Suspect]
     Active Substance: TOFACITINIB CITRATE
  374. XELJANZ [Suspect]
     Active Substance: TOFACITINIB CITRATE
  375. IMURAN [Suspect]
     Active Substance: AZATHIOPRINE
     Indication: Product used for unknown indication
  376. IMURAN [Suspect]
     Active Substance: AZATHIOPRINE

REACTIONS (12)
  - Systemic lupus erythematosus [Fatal]
  - Exposure during pregnancy [Fatal]
  - Synovitis [Fatal]
  - Vomiting [Fatal]
  - Taste disorder [Fatal]
  - Urticaria [Fatal]
  - Maternal exposure during pregnancy [Fatal]
  - Type 2 diabetes mellitus [Fatal]
  - Product label confusion [Fatal]
  - Off label use [Fatal]
  - Swelling [Fatal]
  - Product quality issue [Fatal]
